FAERS Safety Report 10569922 (Version 1)
Quarter: 2014Q4

REPORT INFORMATION
  Report Type: Spontaneous
  Country: SE (occurrence: SE)
  Receive Date: 20141107
  Receipt Date: 20141107
  Transmission Date: 20150529
  Serious: Yes (Hospitalization)
  Sender: FDA-Public Use
  Company Number: SE-ROCHE-1486795

PATIENT
  Age: 75 Year
  Sex: Male

DRUGS (5)
  1. 5-FLUOROURACIL [Concomitant]
     Active Substance: FLUOROURACIL
  2. XELODA [Suspect]
     Active Substance: CAPECITABINE
     Indication: RECTAL CANCER METASTATIC
     Route: 048
     Dates: start: 20140904, end: 20141021
  3. OXALIPLATIN. [Concomitant]
     Active Substance: OXALIPLATIN
  4. LEVOFOLINATE [Concomitant]
     Active Substance: LEVOLEUCOVORIN CALCIUM
  5. XELODA [Suspect]
     Active Substance: CAPECITABINE
     Indication: METASTASES TO LIVER

REACTIONS (5)
  - Skin ulcer [Not Recovered/Not Resolved]
  - Erythema [Not Recovered/Not Resolved]
  - Skin necrosis [Not Recovered/Not Resolved]
  - Penile exfoliation [Not Recovered/Not Resolved]
  - Idiosyncratic drug reaction [Not Recovered/Not Resolved]

NARRATIVE: CASE EVENT DATE: 20141019
